FAERS Safety Report 4600017-8 (Version None)
Quarter: 2005Q1

REPORT INFORMATION
  Report Type: 
  Country: None (occurrence: None)
  Receive Date: 20050307
  Receipt Date: 20050223
  Transmission Date: 20050727
  Serious: Yes (Death)
  Sender: FDA-Public Use
  Company Number: PHBS2005JP02809

PATIENT
  Age: 58 Year
  Sex: Male

DRUGS (4)
  1. NEULEPTIL [Suspect]
     Indication: SCHIZOPHRENIA
     Route: 048
  2. DOGMATYL [Suspect]
     Indication: SCHIZOPHRENIA
     Route: 048
  3. LEXOTAN [Suspect]
     Indication: SCHIZOPHRENIA
     Route: 048
  4. MELLERIL [Suspect]
     Indication: SCHIZOPHRENIA
     Route: 048

REACTIONS (23)
  - ALANINE AMINOTRANSFERASE INCREASED [None]
  - ANAEMIA [None]
  - ASCITES [None]
  - ASPARTATE AMINOTRANSFERASE INCREASED [None]
  - ASTERIXIS [None]
  - BILIARY NEOPLASM [None]
  - BLOOD BILIRUBIN INCREASED [None]
  - BLOOD CREATINE PHOSPHOKINASE INCREASED [None]
  - BLOOD LACTATE DEHYDROGENASE INCREASED [None]
  - HAEMODIALYSIS [None]
  - HEPATIC ENCEPHALOPATHY [None]
  - HEPATIC FAILURE [None]
  - HEPATITIS B [None]
  - JAUNDICE [None]
  - MULTI-ORGAN FAILURE [None]
  - NEUROLEPTIC MALIGNANT SYNDROME [None]
  - OLIGURIA [None]
  - PYREXIA [None]
  - RENAL FAILURE ACUTE [None]
  - SPLENOSIS [None]
  - STAPHYLOCOCCAL SEPSIS [None]
  - TOXIC EPIDERMAL NECROLYSIS [None]
  - VOMITING [None]
